FAERS Safety Report 5481702-5 (Version None)
Quarter: 2007Q3

REPORT INFORMATION
  Report Type: 
  Country: None (occurrence: None)
  Receive Date: 20070917
  Receipt Date: 20060802
  Transmission Date: 20080115
  Serious: Yes (Hospitalization)
  Sender: FDA-Public Use
  Company Number: 2006-BP-08867BP

PATIENT
  Sex: Male

DRUGS (1)
  1. VIRAMUNE [Suspect]
     Indication: HIV INFECTION
     Dosage: (200 MG), PO
     Route: 048

REACTIONS (2)
  - HEPATIC FAILURE [None]
  - LIVER FUNCTION TEST ABNORMAL [None]
